FAERS Safety Report 9448893 (Version 2)
Quarter: 2013Q3

REPORT INFORMATION
  Report Type: Spontaneous
  Country: US (occurrence: US)
  Receive Date: 20130808
  Receipt Date: 20130819
  Transmission Date: 20140515
  Serious: Yes (Hospitalization)
  Sender: FDA-Public Use
  Company Number: US-GILEAD-2013-0080993

PATIENT
  Age: 60 Year
  Sex: Female

DRUGS (20)
  1. LETAIRIS [Suspect]
     Indication: PULMONARY HYPERTENSION
     Dosage: 5 MG, QD
     Dates: start: 20130302
  2. LETAIRIS [Suspect]
     Indication: PORTOPULMONARY HYPERTENSION
  3. OXYGEN [Concomitant]
  4. KRISTALOSE [Concomitant]
  5. REGLAN                             /00041901/ [Concomitant]
     Route: 048
  6. NEURONTIN [Concomitant]
     Route: 048
  7. BENZONATATE [Concomitant]
     Route: 048
  8. TYVASO [Concomitant]
     Route: 055
  9. GLIPIZIDE [Concomitant]
     Route: 048
  10. SYNTHROID [Concomitant]
     Route: 048
  11. MONTELUKAST SODIUM [Concomitant]
     Route: 048
  12. COMBIVENT [Concomitant]
     Route: 055
  13. CLOPIDOGREL BISULFATE [Concomitant]
     Route: 048
  14. BUMETANIDE [Concomitant]
     Route: 048
  15. TOPROL [Concomitant]
     Route: 048
  16. PROTONIX [Concomitant]
     Route: 048
  17. XIFAXAN [Concomitant]
     Route: 048
  18. SPIRONOLACTONE [Concomitant]
     Route: 048
  19. TRAMADOL [Concomitant]
  20. ZOFRAN                             /00955301/ [Concomitant]
     Route: 048

REACTIONS (3)
  - Cellulitis [Recovered/Resolved]
  - Rectal haemorrhage [Recovered/Resolved]
  - Oedema [Unknown]
